FAERS Safety Report 6964059-X (Version None)
Quarter: 2010Q3

REPORT INFORMATION
  Report Type: 
  Country: None (occurrence: None)
  Receive Date: 20100902
  Receipt Date: 20100902
  Transmission Date: 20110219
  Serious: Yes (Hospitalization)
  Sender: FDA-Public Use
  Company Number: None

PATIENT
  Age: 50 Year
  Sex: Female
  Weight: 52.1637 kg

DRUGS (1)
  1. VITAMIN D [Suspect]
     Indication: OSTEOPOROSIS
     Dosage: 50000 UNT 2X WK ORAL
     Route: 048
     Dates: start: 20100214, end: 20100820

REACTIONS (1)
  - NEPHROLITHIASIS [None]
